FAERS Safety Report 18413208 (Version 17)
Quarter: 2023Q2

REPORT INFORMATION
  Report Type: Report from Study
  Country: US (occurrence: US)
  Receive Date: 20201021
  Receipt Date: 20230608
  Transmission Date: 20230722
  Serious: Yes (Hospitalization)
  Sender: FDA-Public Use
  Company Number: NVSC2020US282690

PATIENT
  Age: 61 Year
  Sex: Female
  Weight: 104.31 kg

DRUGS (16)
  1. TREPROSTINIL [Suspect]
     Active Substance: TREPROSTINIL
     Indication: Pulmonary arterial hypertension
     Dosage: 8 NG/KG/MIN, CONT
     Route: 042
     Dates: start: 20201013
  2. TREPROSTINIL [Suspect]
     Active Substance: TREPROSTINIL
     Dosage: 95 NG/KG/MIN, CONT
     Route: 042
     Dates: start: 20201013
  3. TREPROSTINIL [Suspect]
     Active Substance: TREPROSTINIL
     Dosage: 16 NG/KG/MIN, CONT
     Route: 042
  4. TREPROSTINIL [Suspect]
     Active Substance: TREPROSTINIL
     Dosage: 31, NG/KG/MIN CONT (STRENGTH: 2.5 MG/ML)
     Route: 042
  5. TREPROSTINIL [Suspect]
     Active Substance: TREPROSTINIL
     Dosage: 56 NG/KG/MIN CONT (STRENGTH: 5 MG/ML)
     Route: 042
  6. TREPROSTINIL [Suspect]
     Active Substance: TREPROSTINIL
     Dosage: 141 NG/KG/MIN, CONT (STRENGTH: 5 MG/ML)
     Route: 042
  7. TREPROSTINIL [Suspect]
     Active Substance: TREPROSTINIL
     Dosage: 95, NG/KG/ MIN CONT (STRENGTH: 5 MG/ML)
     Route: 042
  8. TREPROSTINIL [Suspect]
     Active Substance: TREPROSTINIL
     Dosage: 95,  NG/KG/ MIN CONT(STRENGTH: 5 MG/ML)
     Route: 042
  9. TREPROSTINIL [Suspect]
     Active Substance: TREPROSTINIL
     Dosage: 41 ML, QD
     Route: 065
  10. TREPROSTINIL [Suspect]
     Active Substance: TREPROSTINIL
     Dosage: 95 NG/KG/ MIN CONT (STRENGTH: 5 MG/ML)
     Route: 042
  11. TREPROSTINIL [Suspect]
     Active Substance: TREPROSTINIL
     Dosage: 95 NG/KG/MIN, CONT
     Route: 042
  12. ELIQUIS [Concomitant]
     Active Substance: APIXABAN
     Indication: Product used for unknown indication
     Dosage: UNK
     Route: 065
  13. TADALAFIL [Concomitant]
     Active Substance: TADALAFIL
     Indication: Product used for unknown indication
     Dosage: UNK
     Route: 065
  14. AMBRISENTAN [Concomitant]
     Active Substance: AMBRISENTAN
     Indication: Product used for unknown indication
     Dosage: 10 MG
     Route: 065
  15. AMBRISENTAN [Concomitant]
     Active Substance: AMBRISENTAN
     Dosage: 5 MG
     Route: 065
  16. AMBRISENTAN [Concomitant]
     Active Substance: AMBRISENTAN
     Dosage: 10 MG
     Route: 065
     Dates: end: 202211

REACTIONS (15)
  - Food poisoning [Unknown]
  - Oxygen saturation decreased [Unknown]
  - Gait inability [Unknown]
  - Dysstasia [Unknown]
  - Illness [Unknown]
  - Peripheral swelling [Unknown]
  - Swelling [Unknown]
  - Abdominal discomfort [Unknown]
  - Pain in jaw [Unknown]
  - Pain in extremity [Unknown]
  - Headache [Unknown]
  - Nausea [Unknown]
  - Abdominal pain upper [Unknown]
  - Diarrhoea [Unknown]
  - Manufacturing product shipping issue [Unknown]

NARRATIVE: CASE EVENT DATE: 20211108
